FAERS Safety Report 5845027-8 (Version None)
Quarter: 2008Q3

REPORT INFORMATION
  Report Type: 
  Country: None (occurrence: None)
  Receive Date: 20080814
  Receipt Date: 20080804
  Transmission Date: 20090109
  Serious: Yes (Other)
  Sender: FDA-Public Use
  Company Number: US-ROCHE-515279

PATIENT
  Age: 56 Year
  Sex: Female

DRUGS (3)
  1. BONIVA [Suspect]
     Indication: OSTEOPOROSIS
     Route: 065
     Dates: start: 20070901
  2. ZOCOR [Concomitant]
  3. VITAMIN B-12 [Concomitant]
     Dosage: DRUG REPORTED AS B12 VITAMINS

REACTIONS (4)
  - ABDOMINAL PAIN UPPER [None]
  - INFLUENZA [None]
  - PYREXIA [None]
  - TRISMUS [None]
